FAERS Safety Report 4361779-0 (Version None)
Quarter: 2004Q2

REPORT INFORMATION
  Report Type: 
  Country: None (occurrence: None)
  Receive Date: 20040521
  Receipt Date: 20040310
  Transmission Date: 20050107
  Serious: Yes (Hospitalization, Other)
  Sender: FDA-Public Use
  Company Number: US-GLAXOSMITHKLINE-A0502422A

PATIENT
  Age: 52 Year
  Sex: Female

DRUGS (6)
  1. WELLBUTRIN XL [Suspect]
     Indication: DEPRESSION
     Route: 048
     Dates: start: 20030101, end: 20040306
  2. TRILEPTAL [Concomitant]
     Dosage: 300MG AT NIGHT
     Route: 048
  3. RISPERDAL [Concomitant]
     Dosage: 1MG AT NIGHT
     Route: 048
  4. PAXIL CR [Concomitant]
     Dosage: 25MG IN THE MORNING
     Route: 048
  5. SYNTHROID [Concomitant]
     Dosage: .1MG IN THE MORNING
     Route: 048
  6. ESTRACE [Concomitant]
     Dosage: 2MG PER DAY
     Route: 048

REACTIONS (3)
  - AMNESIA [None]
  - CONFUSIONAL STATE [None]
  - GRAND MAL CONVULSION [None]
